FAERS Safety Report 6072605-6 (Version None)
Quarter: 2009Q1

REPORT INFORMATION
  Report Type: 
  Country: None (occurrence: None)
  Receive Date: 20090210
  Receipt Date: 20090204
  Transmission Date: 20090719
  Serious: Yes (Hospitalization, Other)
  Sender: FDA-Public Use
  Company Number: US-ELI_LILLY_AND_COMPANY-US200902001131

PATIENT
  Age: 57 Year
  Sex: Male

DRUGS (6)
  1. BYETTA [Suspect]
     Dosage: UNK, UNK
     Route: 058
     Dates: start: 20080805, end: 20081101
  2. ACTOS [Concomitant]
  3. AMARYL [Concomitant]
  4. LISINOPRIL [Concomitant]
  5. ASPIRIN [Concomitant]
  6. LIPITOR [Concomitant]

REACTIONS (1)
  - PANCREATITIS [None]
